FAERS Safety Report 5046301-8 (Version None)
Quarter: 2006Q2

REPORT INFORMATION
  Report Type: 
  Country: None (occurrence: None)
  Receive Date: 20060601
  Receipt Date: 20060214
  Transmission Date: 20061013
  Serious: No
  Sender: FDA-Public Use
  Company Number: 2006PV008697

PATIENT
  Age: 52 Year
  Sex: Female

DRUGS (1)
  1. BYETTA [Suspect]
     Indication: DRUG USE FOR UNKNOWN INDICATION
     Dosage: 5 MCG;SC
     Route: 058
     Dates: start: 20060209

REACTIONS (6)
  - BALANCE DISORDER [None]
  - BLOOD GLUCOSE DECREASED [None]
  - DIZZINESS [None]
  - LETHARGY [None]
  - NAUSEA [None]
  - VOMITING [None]
